FAERS Safety Report 9282528 (Version 1)
Quarter: 2013Q2

REPORT INFORMATION
  Report Type: Report from Study
  Country: ES (occurrence: ES)
  Receive Date: 20130510
  Receipt Date: 20130510
  Transmission Date: 20140414
  Serious: Yes (Other)
  Sender: FDA-Public Use
  Company Number: ES-MILLENNIUM PHARMACEUTICALS, INC.-2013-03431

PATIENT
  Sex: 0

DRUGS (3)
  1. VELCADE [Suspect]
     Indication: PLASMA CELL MYELOMA
  2. DEXAMETHASONE [Concomitant]
     Indication: PLASMA CELL MYELOMA
  3. ADRIAMYCIN                         /00330901/ [Concomitant]
     Indication: PLASMA CELL MYELOMA

REACTIONS (2)
  - Toxicity to various agents [Not Recovered/Not Resolved]
  - No therapeutic response [Unknown]
